FAERS Safety Report 6569837-7 (Version None)
Quarter: 2010Q1

REPORT INFORMATION
  Report Type: 
  Country: None (occurrence: None)
  Receive Date: 20100204
  Receipt Date: 20100104
  Transmission Date: 20100710
  Serious: No
  Sender: FDA-Public Use
  Company Number: US-BAYER-201010527BCC

PATIENT
  Sex: Male
  Weight: 88 kg

DRUGS (1)
  1. ALEVE [Suspect]
     Indication: ARTHRALGIA
     Dosage: TOTAL DAILY DOSE: 440 MG  UNIT DOSE: 220 MG
     Route: 048

REACTIONS (5)
  - DIARRHOEA [None]
  - FLATULENCE [None]
  - GASTROINTESTINAL SOUNDS ABNORMAL [None]
  - MALAISE [None]
  - NAUSEA [None]
